FAERS Safety Report 8812964 (Version 1)
Quarter: 2012Q4

REPORT INFORMATION
  Report Type: 
  Country: US (occurrence: US)
  Receive Date: 20120927
  Receipt Date: 20120927
  Transmission Date: 20130627
  Serious: No
  Sender: FDA-Public Use
  Company Number: US-AMGEN-USASP2012034456

PATIENT
  Sex: Female

DRUGS (2)
  1. PROLIA [Suspect]
     Indication: OSTEOPOROSIS POSTMENOPAUSAL
     Dosage: 60 mg, q6mo
     Dates: start: 201111
  2. PROLIA [Suspect]
     Dosage: 60 mg, q6mo
     Dates: start: 201105, end: 201111

REACTIONS (3)
  - Pain in jaw [Recovering/Resolving]
  - Bone pain [Recovering/Resolving]
  - Swelling face [Recovering/Resolving]
